FAERS Safety Report 23673582 (Version 1)
Quarter: 2024Q1

REPORT INFORMATION
  Report Type: Spontaneous
  Country: US (occurrence: US)
  Receive Date: 20240326
  Receipt Date: 20240326
  Transmission Date: 20240410
  Serious: No
  Sender: FDA-Public Use
  Company Number: US-OrBion Pharmaceuticals Private Limited-2154839

PATIENT
  Age: 74 Year
  Sex: Female

DRUGS (19)
  1. ROPINIROLE HYDROCHLORIDE [Suspect]
     Active Substance: ROPINIROLE HYDROCHLORIDE
     Indication: Restless legs syndrome
     Route: 048
     Dates: start: 20231202, end: 20240125
  2. TRELEGY ELLIPTA [Concomitant]
     Active Substance: FLUTICASONE FUROATE\UMECLIDINIUM BROMIDE\VILANTEROL TRIFENATATE
     Route: 065
  3. TRULICITY [Concomitant]
     Active Substance: DULAGLUTIDE
     Route: 065
  4. DESYREL [Concomitant]
     Active Substance: TRAZODONE HYDROCHLORIDE
     Route: 065
  5. ALDACTONE [Concomitant]
     Active Substance: SPIRONOLACTONE
     Route: 065
  6. INDERAL [Concomitant]
     Active Substance: PROPRANOLOL HYDROCHLORIDE
     Route: 065
  7. GRAVOL [Concomitant]
     Active Substance: DIMENHYDRINATE
     Route: 065
  8. POTASSIUM CHLORIDE [Concomitant]
     Active Substance: POTASSIUM CHLORIDE
     Route: 065
  9. PROTONIX [Concomitant]
     Active Substance: PANTOPRAZOLE SODIUM
     Route: 065
  10. SINGULAIR [Concomitant]
     Active Substance: MONTELUKAST SODIUM
     Route: 065
  11. LOSARTAN POTASSIUM [Concomitant]
     Active Substance: LOSARTAN POTASSIUM
     Route: 065
  12. GLIPIZIDE [Concomitant]
     Active Substance: GLIPIZIDE
     Route: 065
  13. Amtas [Concomitant]
     Route: 065
  14. Neurotin [Concomitant]
     Route: 065
  15. LASIX [Concomitant]
     Active Substance: FUROSEMIDE
     Route: 065
  16. DIFLUCAN [Concomitant]
     Active Substance: FLUCONAZOLE
     Route: 065
  17. PEPCID [Concomitant]
     Active Substance: FAMOTIDINE
     Route: 065
  18. ZETIA [Concomitant]
     Active Substance: EZETIMIBE
     Route: 065
  19. DULOXETINE [Concomitant]
     Active Substance: DULOXETINE
     Route: 065

REACTIONS (4)
  - Drug ineffective [Unknown]
  - Product substitution issue [Unknown]
  - Discomfort [Recovered/Resolved]
  - Pain [Recovered/Resolved]
